FAERS Safety Report 16530657 (Version 1)
Quarter: 2019Q3

REPORT INFORMATION
  Report Type: Spontaneous
  Country: TH (occurrence: TH)
  Receive Date: 20190704
  Receipt Date: 20190704
  Transmission Date: 20191004
  Serious: Yes (Other)
  Sender: FDA-Public Use
  Company Number: TH-009507513-1905THA010628

PATIENT
  Age: 82 Year
  Sex: Female
  Weight: 46 kg

DRUGS (2)
  1. INVANZ [Suspect]
     Active Substance: ERTAPENEM SODIUM
     Indication: OSTEOMYELITIS
     Dosage: 500 MILLIGRAM,ONCE A DAY
     Dates: start: 20150404, end: 20150425
  2. SITAFLOXACIN [Concomitant]
     Active Substance: SITAFLOXACIN
     Indication: OSTEOMYELITIS
     Dosage: 50 MILLIGRAM, TWICE A DAY
     Route: 048
     Dates: start: 20150404, end: 20150425

REACTIONS (1)
  - Product use in unapproved indication [Unknown]

NARRATIVE: CASE EVENT DATE: 20150404
